FAERS Safety Report 4465767-5 (Version None)
Quarter: 2004Q4

REPORT INFORMATION
  Report Type: 
  Country: None (occurrence: None)
  Receive Date: 20041001
  Receipt Date: 20041001
  Transmission Date: 20050328
  Serious: Yes (Life-Threatening)
  Sender: FDA-Public Use
  Company Number: None

PATIENT
  Sex: Male

DRUGS (2)
  1. CEFAZOLIN [Suspect]
     Dosage: 2GM  INTRAVENOUS
     Route: 042
  2. PARRALAX [Suspect]

REACTIONS (4)
  - EYELID OEDEMA [None]
  - FACE OEDEMA [None]
  - OBSTRUCTIVE AIRWAYS DISORDER [None]
  - TONGUE OEDEMA [None]
